FAERS Safety Report 8990430 (Version 1)
Quarter: 2012Q4

REPORT INFORMATION
  Report Type: 
  Country: ES (occurrence: ES)
  Receive Date: 20121228
  Receipt Date: 20121228
  Transmission Date: 20130627
  Serious: Yes (Other)
  Sender: FDA-Public Use
  Company Number: ES-JNJFOC-20121212427

PATIENT

DRUGS (1)
  1. TOPIRAMATE [Suspect]
     Indication: MIGRAINE
     Route: 065

REACTIONS (7)
  - Nephrolithiasis [Unknown]
  - Cognitive disorder [Unknown]
  - Drug ineffective [Unknown]
  - Headache [Unknown]
  - Weight decreased [Unknown]
  - Dyspepsia [Unknown]
  - Paraesthesia [Unknown]
